FAERS Safety Report 5401041-8 (Version None)
Quarter: 2007Q3

REPORT INFORMATION
  Report Type: 
  Country: None (occurrence: None)
  Receive Date: 20070711
  Receipt Date: 20070628
  Transmission Date: 20080115
  Serious: Yes (Other)
  Sender: FDA-Public Use
  Company Number: AEUSA200700161

PATIENT
  Age: 47 Year
  Sex: Male
  Weight: 77.2 kg

DRUGS (5)
  1. GAMUNEX [Suspect]
     Indication: IMMUNODEFICIENCY COMMON VARIABLE
     Dosage: 25 GM; QM; IV
     Route: 042
  2. GAMUNEX [Suspect]
     Indication: PROTEIN-LOSING GASTROENTEROPATHY
     Dosage: 25 GM; QM; IV
     Route: 042
  3. GAMUNEX [Suspect]
  4. GAMIMUNE N - TALECRIS [Suspect]
     Indication: IMMUNODEFICIENCY COMMON VARIABLE
     Dosage: QM; IV
     Route: 042
     Dates: start: 20000101
  5. GAMIMUNE N - TALECRIS [Suspect]
     Indication: PROTEIN-LOSING GASTROENTEROPATHY
     Dosage: QM; IV
     Route: 042
     Dates: start: 20000101

REACTIONS (1)
  - HEPATITIS C VIRUS [None]
